FAERS Safety Report 21143843 (Version 5)
Quarter: 2024Q4

REPORT INFORMATION
  Report Type: Spontaneous
  Country: US (occurrence: US)
  Receive Date: 20220728
  Receipt Date: 20241206
  Transmission Date: 20250114
  Serious: No
  Sender: PFIZER
  Company Number: US-PFIZER INC-PV202200030936

PATIENT
  Age: 73 Year
  Sex: Female

DRUGS (1)
  1. IBRANCE [Suspect]
     Active Substance: PALBOCICLIB
     Dosage: 1 CAPSULE ORALLY DAILY, FOR DAYS 1-21 THEN OFF 7 DAYS.
     Route: 048

REACTIONS (2)
  - Weight decreased [Unknown]
  - Blood glucose decreased [Unknown]
